FAERS Safety Report 9861402 (Version 1)
Quarter: 2014Q1

REPORT INFORMATION
  Report Type: Spontaneous
  Country: US (occurrence: None)
  Receive Date: 20140130
  Receipt Date: 20140130
  Transmission Date: 20141002
  Serious: Yes (Death)
  Sender: FDA-Public Use
  Company Number: 2014AP000639

PATIENT
  Age: 43 Year
  Sex: Female

DRUGS (4)
  1. QUETIAPINE FUMARATE [Suspect]
     Dosage: ; PO
     Route: 048
  2. CHLORPROMAZINE [Suspect]
     Dosage: ; PO
     Route: 048
  3. HYDROMORPHINE [Suspect]
     Dosage: ; PO
     Route: 048
  4. LEVAMISOLE [Suspect]
     Dosage: ; PO
     Route: 048

REACTIONS (1)
  - Drug abuse [None]
